FAERS Safety Report 9356760 (Version 2)
Quarter: 2013Q3

REPORT INFORMATION
  Report Type: Spontaneous
  Country: GB (occurrence: GB)
  Receive Date: 20130619
  Receipt Date: 20130705
  Transmission Date: 20140515
  Serious: Yes (Hospitalization)
  Sender: FDA-Public Use
  Company Number: PHFR2013GB003481

PATIENT
  Age: 50 Year
  Sex: Male

DRUGS (2)
  1. CLOZARIL [Suspect]
     Indication: SCHIZOPHRENIA
     Dosage: UNK
     Route: 048
     Dates: start: 20011215
  2. CLOZARIL [Suspect]
     Dosage: 150 MG
     Route: 048

REACTIONS (3)
  - Movement disorder [Unknown]
  - Nervous system disorder [Unknown]
  - White blood cell count increased [Unknown]
